FAERS Safety Report 5835223-8 (Version None)
Quarter: 2008Q3

REPORT INFORMATION
  Report Type: 
  Country: None (occurrence: None)
  Receive Date: 20080806
  Receipt Date: 20080729
  Transmission Date: 20090109
  Serious: Yes (Other)
  Sender: FDA-Public Use
  Company Number: US-ASTRAZENECA-2008UW00217

PATIENT
  Age: 44 Year
  Sex: Male
  Weight: 83.9 kg

DRUGS (4)
  1. SEROQUEL [Suspect]
     Indication: SCHIZOPHRENIA
     Route: 048
     Dates: start: 19990101, end: 20070101
  2. ABILIFY [Concomitant]
     Dates: start: 20040101
  3. RISPERDAL [Concomitant]
     Dates: start: 19970101
  4. ZYPREXA [Concomitant]
     Dates: start: 19950101

REACTIONS (7)
  - BLOOD CHOLESTEROL INCREASED [None]
  - BLOOD TRIGLYCERIDES INCREASED [None]
  - DIABETES MELLITUS [None]
  - DIABETIC COMA [None]
  - GASTRITIS [None]
  - MYOCARDIAL INFARCTION [None]
  - PANCREATITIS [None]
